FAERS Safety Report 16127743 (Version 1)
Quarter: 2019Q1

REPORT INFORMATION
  Report Type: Spontaneous
  Country: US (occurrence: US)
  Receive Date: 20190328
  Receipt Date: 20190328
  Transmission Date: 20190418
  Serious: Yes (Hospitalization)
  Sender: FDA-Public Use
  Company Number: US-BAYER-2019-060163

PATIENT
  Age: 19 Year
  Sex: Male

DRUGS (1)
  1. ULTRAVIST [Suspect]
     Active Substance: IOPROMIDE
     Indication: COMPUTERISED TOMOGRAM
     Dosage: 100 ML, ONCE
     Route: 042
     Dates: start: 20190325, end: 20190325

REACTIONS (5)
  - Urticaria [None]
  - Lip swelling [None]
  - Eye pruritus [None]
  - Throat irritation [None]
  - Pharyngeal oedema [None]

NARRATIVE: CASE EVENT DATE: 20190325
